FAERS Safety Report 20713147 (Version 1)
Quarter: 2022Q2

REPORT INFORMATION
  Report Type: Spontaneous
  Country: US (occurrence: US)
  Receive Date: 20220415
  Receipt Date: 20220415
  Transmission Date: 20220721
  Serious: Yes (Hospitalization, Other)
  Sender: FDA-Public Use
  Company Number: US-ALEMBIC PHARMACUETICALS LIMITED-2022SCAL000141

PATIENT

DRUGS (1)
  1. CLONIDINE HYDROCHLORIDE [Suspect]
     Active Substance: CLONIDINE HYDROCHLORIDE
     Indication: Product used for unknown indication
     Dosage: INGESTING 30 PILLS OF CLONIDINE
     Route: 065

REACTIONS (11)
  - Acute myocardial infarction [Unknown]
  - Arteriospasm coronary [Unknown]
  - Bradycardia [Unknown]
  - Troponin increased [Recovered/Resolved]
  - Chest pain [Unknown]
  - Left ventricular failure [Unknown]
  - Left ventricular hypertrophy [Unknown]
  - Left ventricular dysfunction [Unknown]
  - Ejection fraction decreased [Unknown]
  - Cardiomyopathy [Unknown]
  - Overdose [Unknown]
